FAERS Safety Report 19441020 (Version 1)
Quarter: 2021Q2

REPORT INFORMATION
  Report Type: Report from Study
  Country: GB (occurrence: GB)
  Receive Date: 20210621
  Receipt Date: 20210621
  Transmission Date: 20210717
  Serious: Yes (Death, Hospitalization)
  Sender: FDA-Public Use
  Company Number: GB-CELLTRION INC.-2021GB008288

PATIENT

DRUGS (21)
  1. TRASTUZUMAB (UNKNOWN) [Suspect]
     Active Substance: TRASTUZUMAB
     Indication: BREAST CANCER METASTATIC
     Dosage: 609 MG, EVERY 3 WEEKS; LOADING DOSE: 8 MG/KG (CUMULATIVE DOSE TO FIRST REACTION: 929.2083 MG; PHARMA
     Route: 042
     Dates: start: 20150930, end: 20150930
  2. PERTUZUMAB. [Suspect]
     Active Substance: PERTUZUMAB
     Dosage: 420 MG EVERY 3 WEEKS; MAINTAINANCE DOSE (CUMULATIVE DOSE TO FIRST REACTION: 220.83333 MG PHARMACEUTI
     Route: 042
     Dates: start: 20151021
  3. PERTUZUMAB. [Suspect]
     Active Substance: PERTUZUMAB
     Indication: BREAST CANCER METASTATIC
     Dosage: 840 MG EVERY 3 WEEKS; LOADING DOSE (CUMULATIVE DOSE TO FIRST REACTION: 1281.6666 MG; PHARMACEUTICAL
     Route: 042
     Dates: start: 20150930, end: 20150930
  4. CHLORPHENAMINE [Concomitant]
     Active Substance: CHLORPHENIRAMINE MALEATE
     Dosage: 10 MG, EVERY WEEK; ANTIHISTAMINE DELIVERED WITH PACLITAXEL (CUMULATIVE DOSE TO FIRST REACTION: 14.28
     Route: 058
     Dates: start: 20151111, end: 20160127
  5. CO?AMOXICLAV [Concomitant]
     Active Substance: AMOXICILLIN\CLAVULANATE POTASSIUM
     Indication: FEBRILE NEUTROPENIA
     Dosage: 1875 MG, EVERY DAY (CUMULATIVE DOSE TO FIRST REACTION: 39375.0 MG) (DOSE FORM: 245)
     Route: 048
     Dates: start: 20151122, end: 20151125
  6. OMEPRAZOLE. [Concomitant]
     Active Substance: OMEPRAZOLE
     Indication: DYSPEPSIA
     Dosage: 20 MG, EVERY DAY (DOSE FORM: 5)
     Route: 048
     Dates: start: 201509
  7. PREGABALIN. [Concomitant]
     Active Substance: PREGABALIN
     Dosage: 150 MG, EVERY DAY (DOSE FORM: 245)
     Route: 048
     Dates: start: 201509
  8. DOCETAXEL. [Suspect]
     Active Substance: DOCETAXEL
     Indication: BREAST CANCER METASTATIC
     Dosage: 110 MG, EVERY 3 WEEKS; NUMBER OF CYCLE PER REGIMEN 2 (CUMULATIVE DOSE TO FIRST REACTION: 167.8373 MG
     Route: 042
     Dates: start: 20150930, end: 20151021
  9. GENTAMICIN. [Concomitant]
     Active Substance: GENTAMICIN
     Indication: FEBRILE NEUTROPENIA
     Dosage: UNK
     Route: 042
     Dates: start: 20151121, end: 201511
  10. LEVOFLOXACIN. [Concomitant]
     Active Substance: LEVOFLOXACIN
     Indication: FEBRILE NEUTROPENIA
     Dosage: 500 MG, EVERY DAY (CUMULATIVE DOSE TO FIRST REACTION: 12000.0 MG) DOSE FORM: 245
     Route: 048
     Dates: start: 20151125, end: 20151128
  11. PACLITAXEL. [Suspect]
     Active Substance: PACLITAXEL
     Indication: BREAST CANCER METASTATIC
     Dosage: 150 MG, EVERY WEEK (CUMULATIVE DOSE TO FIRST REACTION: 214.28572 MG)
     Route: 042
     Dates: start: 20151111, end: 20151222
  12. TRASTUZUMAB (UNKNOWN) [Suspect]
     Active Substance: TRASTUZUMAB
     Dosage: 441 MG; EVERY 3 WEEKS; MAINTAINANCE DOSE: 6 MG/KG (CUMULATIVE DOSE TO FIRST REACTION: 231.875 MG; PH
     Route: 042
     Dates: start: 20151021
  13. MORPHINE [Concomitant]
     Active Substance: MORPHINE
     Dosage: 60 MG, EVERY DAY; MORPHINE MR (DOSE FORM: 5)
     Route: 048
     Dates: start: 201509
  14. RANITIDINE. [Concomitant]
     Active Substance: RANITIDINE
     Indication: GASTROOESOPHAGEAL REFLUX DISEASE
     Dosage: 50 MG, EVERY WEEK (CUMULATIVE DOSE TO FIRST REACTION: 71.42857 MG)
     Route: 058
     Dates: start: 20151111
  15. PACLITAXEL. [Suspect]
     Active Substance: PACLITAXEL
     Dosage: 120 MG, EVERY WEEK (CUMULATIVE DOSE TO FIRST REACTION: 891.4286 MG)
     Route: 042
     Dates: start: 20151223, end: 20151223
  16. DENOSUMAB [Concomitant]
     Active Substance: DENOSUMAB
     Indication: METASTASES TO BONE
     Dosage: 120 MG EVERY 9 WEEKS (CUMULATIVE DOSE TO FIRST REACTION: 61.031746 MG)
     Route: 058
     Dates: start: 20150930
  17. MIRTAZAPINE. [Concomitant]
     Active Substance: MIRTAZAPINE
     Dosage: 15 MG, EVERY DAY (DOSE FORM: 245)
     Route: 048
     Dates: start: 201510
  18. ORAMORPH [Concomitant]
     Active Substance: MORPHINE SULFATE
     Dosage: 10 MG, AS NECESSARY
     Route: 048
     Dates: start: 201509
  19. CALCICHEW D3 [Concomitant]
     Active Substance: CALCIUM\CHOLECALCIFEROL
     Dosage: 2 DF, EVERY DAY (DOSE FORM: 245)
     Route: 048
     Dates: start: 2011
  20. PARACETAMOL [Concomitant]
     Active Substance: ACETAMINOPHEN
     Indication: PAIN
     Dosage: 500 MG, AS NECESSARY (DOSE FORM: 245)
     Route: 048
     Dates: start: 20160127
  21. TAZOCIN [Concomitant]
     Active Substance: PIPERACILLIN SODIUM\TAZOBACTAM SODIUM
     Indication: FEBRILE NEUTROPENIA
     Dosage: UNK
     Route: 042
     Dates: start: 20151121, end: 201511

REACTIONS (10)
  - Dyspepsia [Recovered/Resolved]
  - Diarrhoea [Recovered/Resolved]
  - Neuropathy peripheral [Recovered/Resolved]
  - Disease progression [Fatal]
  - Alopecia [Recovered/Resolved]
  - Nasal discomfort [Recovered/Resolved]
  - Nausea [Recovered/Resolved]
  - Cellulitis [Recovered/Resolved]
  - Mucosal inflammation [Recovered/Resolved]
  - Fatigue [Recovered/Resolved]

NARRATIVE: CASE EVENT DATE: 201511
